FAERS Safety Report 18900892 (Version 1)
Quarter: 2021Q1

REPORT INFORMATION
  Report Type: Spontaneous
  Country: US (occurrence: US)
  Receive Date: 20210217
  Receipt Date: 20210217
  Transmission Date: 20210420
  Serious: Yes (Other)
  Sender: FDA-Public Use
  Company Number: US-NOVEN PHARMACEUTICALS, INC.-2020US009312

PATIENT
  Age: 15 Year
  Sex: Male

DRUGS (4)
  1. DAYTRANA [Suspect]
     Active Substance: METHYLPHENIDATE
     Indication: ATTENTION DEFICIT HYPERACTIVITY DISORDER
     Dosage: 20 MG/9HRS, UNK
     Route: 062
  2. DAYTRANA [Suspect]
     Active Substance: METHYLPHENIDATE
     Dosage: 20 MG/9HRS, UNK
     Route: 062
  3. DAYTRANA [Suspect]
     Active Substance: METHYLPHENIDATE
     Dosage: 10/9HRS, UNK, USED FOR 1 WEEK
     Route: 062
  4. DAYTRANA [Suspect]
     Active Substance: METHYLPHENIDATE
     Dosage: 30 MG/9HRS, UNK
     Route: 062

REACTIONS (9)
  - Application site rash [Recovered/Resolved]
  - Application site reaction [Unknown]
  - Aggression [Unknown]
  - Device difficult to use [Unknown]
  - Device adhesion issue [Unknown]
  - Therapeutic product effect increased [Recovered/Resolved]
  - Mental impairment [Unknown]
  - Rash [Recovered/Resolved]
  - Device physical property issue [Unknown]
